FAERS Safety Report 6974363-7 (Version None)
Quarter: 2010Q3

REPORT INFORMATION
  Report Type: 
  Country: None (occurrence: None)
  Receive Date: 20100909
  Receipt Date: 20100903
  Transmission Date: 20110219
  Serious: Yes (Other)
  Sender: FDA-Public Use
  Company Number: JP-GENENTECH-306182

PATIENT
  Sex: Female

DRUGS (3)
  1. RITUXAN [Suspect]
     Indication: THROMBOCYTOPENIC PURPURA
     Dosage: 185 MG, UNK
     Route: 042
     Dates: start: 20100804
  2. ACETAMINOPHEN [Concomitant]
     Indication: PRODUCT USED FOR UNKNOWN INDICATION
     Dosage: 100 MG, SINGLE
     Dates: start: 20100804, end: 20100804
  3. ATARAX [Concomitant]
     Indication: PREMEDICATION
     Dosage: 10 MG, UNK
     Dates: start: 20100804, end: 20100804

REACTIONS (1)
  - CONVULSION [None]
